FAERS Safety Report 5970421-4 (Version None)
Quarter: 2008Q4

REPORT INFORMATION
  Report Type: 
  Country: None (occurrence: None)
  Receive Date: 20081126
  Receipt Date: 20081119
  Transmission Date: 20090506
  Serious: Yes (Other)
  Sender: FDA-Public Use
  Company Number: DK-PFIZER INC-2008099311

PATIENT
  Sex: Female

DRUGS (5)
  1. ZARATOR [Suspect]
     Indication: HYPERCHOLESTEROLAEMIA
     Route: 048
     Dates: start: 20060929, end: 20081015
  2. SIMVASTATIN [Suspect]
     Indication: HYPERCHOLESTEROLAEMIA
     Route: 048
     Dates: end: 20070409
  3. ELTROXIN [Concomitant]
     Route: 048
     Dates: start: 20080929
  4. PANTOPRAZOLE SODIUM [Concomitant]
     Route: 048
     Dates: start: 20070725
  5. WARFARIN SODIUM [Concomitant]

REACTIONS (1)
  - INTERNATIONAL NORMALISED RATIO INCREASED [None]
